FAERS Safety Report 5759696-4 (Version None)
Quarter: 2008Q2

REPORT INFORMATION
  Report Type: 
  Country: None (occurrence: None)
  Receive Date: 20080605
  Receipt Date: 20080530
  Transmission Date: 20081010
  Serious: Yes (Other)
  Sender: FDA-Public Use
  Company Number: A0731227A

PATIENT
  Age: 34 Year
  Sex: Male
  Weight: 81.8 kg

DRUGS (1)
  1. MALARONE [Suspect]
     Indication: MALARIA PROPHYLAXIS
     Dosage: 1TAB PER DAY
     Route: 048
     Dates: start: 20071224

REACTIONS (8)
  - ABNORMAL DREAMS [None]
  - ABNORMAL SLEEP-RELATED EVENT [None]
  - AGITATION [None]
  - AKATHISIA [None]
  - FEAR [None]
  - HALLUCINATION [None]
  - NIGHTMARE [None]
  - RESTLESSNESS [None]
